FAERS Safety Report 9675002 (Version 2)
Quarter: 2013Q4

REPORT INFORMATION
  Report Type: Spontaneous
  Country: US (occurrence: US)
  Receive Date: 20131107
  Receipt Date: 20131203
  Transmission Date: 20140711
  Serious: Yes (Hospitalization, Other)
  Sender: FDA-Public Use
  Company Number: US-BAYER-2013-133481

PATIENT
  Age: 93 Year
  Sex: Male
  Weight: 65.31 kg

DRUGS (2)
  1. XOFIGO [Suspect]
     Indication: PAIN
     Dosage: STANDARD
     Dates: start: 20130911, end: 20130911
  2. XOFIGO [Suspect]
     Indication: PAIN
     Dosage: STANDARD
     Dates: start: 20131018, end: 20131018

REACTIONS (3)
  - Urinary tract infection [Recovered/Resolved]
  - Urinary tract infection [Recovered/Resolved]
  - Off label use [None]
